FAERS Safety Report 8388421-6 (Version None)
Quarter: 2012Q2

REPORT INFORMATION
  Report Type: 
  Country: None (occurrence: None)
  Receive Date: 20120525
  Receipt Date: 20120516
  Transmission Date: 20120825
  Serious: Yes (Other)
  Sender: FDA-Public Use
  Company Number: FR-ASTRAZENECA-2012SE31745

PATIENT
  Sex: Female
  Weight: 49 kg

DRUGS (3)
  1. VANDETANIB [Suspect]
     Route: 048
     Dates: start: 20101214, end: 20120516
  2. VANDETANIB [Suspect]
     Indication: THYROID CANCER
     Route: 048
     Dates: start: 20070228, end: 20071101
  3. VANDETANIB [Suspect]
     Route: 048
     Dates: start: 20071101, end: 20101101

REACTIONS (2)
  - CORNEAL DEPOSITS [None]
  - VISUAL ACUITY REDUCED [None]
